FAERS Safety Report 15791145 (Version 1)
Quarter: 2019Q1

REPORT INFORMATION
  Report Type: Spontaneous
  Country: US (occurrence: US)
  Receive Date: 20190104
  Receipt Date: 20190104
  Transmission Date: 20190417
  Serious: Yes (Other)
  Sender: FDA-Public Use
  Company Number: US-PFIZER INC-2019004282

PATIENT
  Age: 64 Year
  Sex: Female

DRUGS (2)
  1. GENOTROPIN MQ [Suspect]
     Active Substance: SOMATROPIN
     Indication: GROWTH HORMONE DEFICIENCY
     Dosage: 0.6 MG, DAILY
     Dates: start: 20060331, end: 201010
  2. GENOTROPIN MQ [Suspect]
     Active Substance: SOMATROPIN
     Dosage: 0.6 MG, DAILY
     Dates: start: 201011

REACTIONS (2)
  - Asthenia [Recovering/Resolving]
  - Breast cancer [Unknown]

NARRATIVE: CASE EVENT DATE: 201010
